FAERS Safety Report 10011776 (Version 1)
Quarter: 2014Q1

REPORT INFORMATION
  Report Type: Spontaneous
  Country: US (occurrence: US)
  Receive Date: 20140314
  Receipt Date: 20140314
  Transmission Date: 20141002
  Serious: Yes (Death)
  Sender: FDA-Public Use
  Company Number: US-BRISTOL-MYERS SQUIBB COMPANY-20416384

PATIENT
  Sex: Male

DRUGS (3)
  1. BYETTA [Suspect]
     Dates: start: 20060324, end: 20081104
  2. JANUVIA [Suspect]
     Dates: start: 20110105
  3. VICTOZA [Suspect]
     Dates: start: 20120209, end: 20121129

REACTIONS (1)
  - Pancreatic carcinoma [Fatal]
